FAERS Safety Report 20753224 (Version 1)
Quarter: 2022Q2

REPORT INFORMATION
  Report Type: Spontaneous
  Country: US (occurrence: None)
  Receive Date: 20220426
  Receipt Date: 20220426
  Transmission Date: 20220721
  Serious: No
  Sender: FDA-Public Use
  Company Number: US-ROCHE-3030122

PATIENT
  Sex: Male
  Weight: 90.800 kg

DRUGS (1)
  1. ESBRIET [Suspect]
     Active Substance: PIRFENIDONE
     Indication: Pulmonary fibrosis
     Dosage: 267MG TABLETS TAKES 3 TABLETS, 3 TIMES A DAY FOR A TOTAL OF 9 TABLETS A DAY
     Route: 048
     Dates: start: 202109

REACTIONS (1)
  - Rash [Not Recovered/Not Resolved]
